FAERS Safety Report 6233644-5 (Version None)
Quarter: 2009Q2

REPORT INFORMATION
  Report Type: 
  Country: None (occurrence: None)
  Receive Date: 20090617
  Receipt Date: 20090603
  Transmission Date: 20091009
  Serious: Yes (Death)
  Sender: FDA-Public Use
  Company Number: JP-MYLANLABS-2009S1009901

PATIENT
  Age: 70 Year
  Sex: Female

DRUGS (3)
  1. PACLITAXEL [Suspect]
     Indication: ENDOMETRIAL CANCER
     Route: 042
  2. CYCLOPHOSPHAMIDE [Suspect]
     Indication: ENDOMETRIAL CANCER
     Route: 042
     Dates: start: 20030701
  3. EPIRUBICIN [Suspect]
     Indication: ENDOMETRIAL CANCER
     Route: 042
     Dates: start: 20030701

REACTIONS (1)
  - MYELODYSPLASTIC SYNDROME [None]
